FAERS Safety Report 5248865-8 (Version None)
Quarter: 2007Q1

REPORT INFORMATION
  Report Type: 
  Country: None (occurrence: None)
  Receive Date: 20070228
  Receipt Date: 20060407
  Transmission Date: 20070707
  Serious: No
  Sender: FDA-Public Use
  Company Number: US-GLAXOSMITHKLINE-A0598832A

PATIENT
  Age: 15 Year
  Sex: Female

DRUGS (1)
  1. VALTREX [Suspect]
     Indication: HERPES VIRUS INFECTION
     Dosage: 500MG AT NIGHT
     Route: 048
     Dates: start: 20050326

REACTIONS (2)
  - DIZZINESS [None]
  - EAR INFECTION [None]
